FAERS Safety Report 5915421-5 (Version None)
Quarter: 2008Q4

REPORT INFORMATION
  Report Type: 
  Country: None (occurrence: None)
  Receive Date: 20081009
  Receipt Date: 20081009
  Transmission Date: 20090506
  Serious: Yes (Other)
  Sender: FDA-Public Use
  Company Number: None

PATIENT
  Age: 43 Year
  Sex: Male
  Weight: 136.0791 kg

DRUGS (2)
  1. CHANTIX [Suspect]
     Indication: SMOKING CESSATION THERAPY
     Dosage: 1 TABL 0.5 - 0.5 2X A DAY 2 DAILY PO
     Route: 048
     Dates: start: 20080922, end: 20081003
  2. CHANTIX [Suspect]
     Dosage: 1MG TAB 2X DAILY

REACTIONS (9)
  - ABDOMINAL PAIN [None]
  - AGITATION [None]
  - ANXIETY [None]
  - BLOOD PRESSURE INCREASED [None]
  - DEPRESSION [None]
  - FEELING ABNORMAL [None]
  - NAUSEA [None]
  - PANIC ATTACK [None]
  - VISION BLURRED [None]
